FAERS Safety Report 10558172 (Version 3)
Quarter: 2015Q2

REPORT INFORMATION
  Report Type: Spontaneous
  Country: US (occurrence: US)
  Receive Date: 20141031
  Receipt Date: 20150430
  Transmission Date: 20150821
  Serious: Yes (Other)
  Sender: FDA-Public Use
  Company Number: US-TEVA-518723USA

PATIENT
  Sex: Male

DRUGS (1)
  1. COPAXONE [Suspect]
     Active Substance: GLATIRAMER ACETATE
     Indication: MULTIPLE SCLEROSIS
     Dates: start: 201405, end: 20141001

REACTIONS (5)
  - Gait disturbance [Unknown]
  - Multiple sclerosis [Unknown]
  - Drug ineffective [Unknown]
  - Hypoaesthesia [Unknown]
  - Blindness unilateral [Unknown]
